FAERS Safety Report 14355522 (Version 1)
Quarter: 2018Q1

REPORT INFORMATION
  Report Type: Spontaneous
  Country: IL (occurrence: IL)
  Receive Date: 20180105
  Receipt Date: 20180105
  Transmission Date: 20180509
  Serious: Yes (Hospitalization, Other)
  Sender: FDA-Public Use
  Company Number: IL-BAYER-2018-000060

PATIENT
  Age: 42 Year
  Sex: Female

DRUGS (3)
  1. MIRENA [Suspect]
     Active Substance: LEVONORGESTREL
     Dosage: 20 ?G, CONT
     Route: 015
     Dates: start: 2012, end: 201712
  2. MIRENA [Suspect]
     Active Substance: LEVONORGESTREL
     Dosage: 20 MCG/24HR, CONT
     Route: 015
     Dates: start: 201712, end: 20171226
  3. MIRENA [Suspect]
     Active Substance: LEVONORGESTREL

REACTIONS (6)
  - Cervix disorder [None]
  - Squamous cell carcinoma of the cervix [None]
  - Ectropion of cervix [None]
  - Cervix haemorrhage uterine [Not Recovered/Not Resolved]
  - Medical device monitoring error [None]
  - Contraindicated device used [None]

NARRATIVE: CASE EVENT DATE: 201712
